FAERS Safety Report 4842270-1 (Version None)
Quarter: 2005Q4

REPORT INFORMATION
  Report Type: 
  Country: None (occurrence: None)
  Receive Date: 20051125
  Receipt Date: 20051115
  Transmission Date: 20060501
  Serious: Yes (Hospitalization, Other)
  Sender: FDA-Public Use
  Company Number: 2005156577

PATIENT
  Age: 63 Year
  Sex: Female
  Weight: 117.9352 kg

DRUGS (15)
  1. LIPITOR [Suspect]
     Indication: BLOOD CHOLESTEROL INCREASED
     Dosage: 20 MG (20 MG, 1 IN 1 D), ORAL
     Route: 048
     Dates: start: 20000101
  2. NORVASC [Suspect]
     Indication: HYPERTENSION
     Dosage: 10 MG (10 MG, 1 IN 1 D)
  3. ASPIRIN [Concomitant]
  4. HYZAAR [Concomitant]
  5. PREMARIN [Concomitant]
  6. IBUPROFEN [Concomitant]
  7. DICLOFENAC (DIFLOCENAC SODIUM) [Concomitant]
  8. FUROSEMIDE [Concomitant]
  9. WELLBUTRIN [Concomitant]
  10. TOPAMAX [Concomitant]
  11. DETROL LA [Concomitant]
  12. MIRTAZAPINE [Concomitant]
  13. METHADONE (METHADONE) [Concomitant]
  14. ANTITUSSIVES AND EXPECTORANTS, COMBINATIONS (ANTITUSSIVES AND EXPECTOR [Concomitant]
  15. TRANSDERM PATCH (GLYBERYL TRINITRATE) [Concomitant]

REACTIONS (9)
  - ARTHROPOD BITE [None]
  - CARDIAC FAILURE [None]
  - FALL [None]
  - HYPERTENSION [None]
  - PAIN [None]
  - ROTATOR CUFF REPAIR [None]
  - SCAR [None]
  - SWELLING [None]
  - UPPER LIMB FRACTURE [None]
